FAERS Safety Report 23410508 (Version 1)
Quarter: 2024Q1

REPORT INFORMATION
  Report Type: Spontaneous
  Country: PH (occurrence: PH)
  Receive Date: 20240117
  Receipt Date: 20240117
  Transmission Date: 20240410
  Serious: Yes (Other)
  Sender: FDA-Public Use
  Company Number: PH-BAYER-2024A006557

PATIENT
  Age: 18 Year
  Sex: Female

DRUGS (1)
  1. ULTRAVIST [Suspect]
     Active Substance: IOPROMIDE
     Indication: Computerised tomogram
     Dosage: 300 ML
     Dates: start: 20240114

REACTIONS (2)
  - Wheezing [None]
  - Urticaria [None]

NARRATIVE: CASE EVENT DATE: 20240114
